FAERS Safety Report 7821730-5 (Version None)
Quarter: 2011Q4

REPORT INFORMATION
  Report Type: 
  Country: None (occurrence: None)
  Receive Date: 20111018
  Receipt Date: 20100911
  Transmission Date: 20120403
  Serious: No
  Sender: FDA-Public Use
  Company Number: US-ASTRAZENECA-2010SE42879

PATIENT
  Age: 50 Year
  Sex: Female

DRUGS (5)
  1. LOVASTATIN [Concomitant]
     Indication: PAIN
  2. OMEPIAZOLE [Concomitant]
  3. SYMBICORT [Suspect]
     Indication: ASTHMA
     Route: 055
     Dates: start: 20100701
  4. DILTIAZEM HCL [Concomitant]
     Indication: HYPERTENSION
  5. METFORMIN HCL [Concomitant]
     Indication: DIABETES MELLITUS

REACTIONS (3)
  - DRUG DOSE OMISSION [None]
  - PRURITUS [None]
  - BURNING SENSATION [None]
